FAERS Safety Report 17690140 (Version 1)
Quarter: 2020Q2

REPORT INFORMATION
  Report Type: Spontaneous
  Country: JP (occurrence: JP)
  Receive Date: 20200421
  Receipt Date: 20200421
  Transmission Date: 20200714
  Serious: Yes (Other)
  Sender: FDA-Public Use
  Company Number: JP-JNJFOC-20200414710

PATIENT

DRUGS (2)
  1. SIMPONI [Suspect]
     Active Substance: GOLIMUMAB
     Indication: RHEUMATOID ARTHRITIS
     Dosage: GOLIMUMAB(GENETICAL RECOMBINATION):50MG
     Route: 058
     Dates: start: 201910, end: 201912
  2. SIMPONI [Suspect]
     Active Substance: GOLIMUMAB
     Dosage: UNKNOWN
     Route: 058
     Dates: start: 2020

REACTIONS (3)
  - Rheumatoid arthritis [Unknown]
  - Tongue erythema [Unknown]
  - Drug ineffective [Unknown]

NARRATIVE: CASE EVENT DATE: 2019
